FAERS Safety Report 10340092 (Version 5)
Quarter: 2014Q3

REPORT INFORMATION
  Report Type: Spontaneous
  Country: US (occurrence: None)
  Receive Date: 20140722
  Receipt Date: 20140829
  Transmission Date: 20150326
  Serious: Yes (Hospitalization, Other)
  Sender: FDA-Public Use
  Company Number: UNT-2014-003768

PATIENT
  Age: 23 Year
  Sex: Female
  Weight: 52.2 kg

DRUGS (11)
  1. MELATONIN (MELATONIN) [Concomitant]
     Active Substance: MELATONIN
  2. REMODULIN [Suspect]
     Active Substance: TREPROSTINIL
     Indication: COR PULMONALE
     Dosage: 0.183 UG/KG, CONTINUING, IV DRIP
     Route: 041
     Dates: start: 20041109
  3. MIRTAZAPINE (MIRTAZAPINE) [Concomitant]
     Active Substance: MIRTAZAPINE
  4. ADCIRCA [Concomitant]
     Active Substance: TADALAFIL
  5. LASIX [Concomitant]
     Active Substance: FUROSEMIDE
  6. REMODULIN [Suspect]
     Active Substance: TREPROSTINIL
     Indication: COR PULMONALE CHRONIC
     Dosage: 0.183 UG/KG, CONTINUING, IV DRIP
     Route: 041
     Dates: start: 20041109
  7. WARFARIN [Concomitant]
     Active Substance: WARFARIN
  8. LETAIRIS [Concomitant]
     Active Substance: AMBRISENTAN
  9. REMODULIN [Suspect]
     Active Substance: TREPROSTINIL
     Indication: PULMONARY ARTERIAL HYPERTENSION
     Dosage: 0.183 UG/KG, CONTINUING, IV DRIP
     Route: 041
     Dates: start: 20041109
  10. ASPIRIN. [Concomitant]
     Active Substance: ASPIRIN
  11. OMEPRAZOLE (OMEPRAZOLE) [Concomitant]
     Active Substance: OMEPRAZOLE

REACTIONS (22)
  - Loss of consciousness [None]
  - Thrombosis [None]
  - Depression [None]
  - Sepsis [None]
  - Pulmonary arterial hypertension [None]
  - Atrial septal defect [None]
  - Pneumonia klebsiella [None]
  - Overdose [None]
  - Oropharyngeal pain [None]
  - Cardiac failure [None]
  - Respiratory failure [None]
  - Brain natriuretic peptide increased [None]
  - Pulmonary oedema [None]
  - Pneumonia aspiration [None]
  - Back pain [None]
  - Flank pain [None]
  - Tricuspid valve incompetence [None]
  - Mental disorder [None]
  - Abnormal behaviour [None]
  - Treatment noncompliance [None]
  - Drug dose omission [None]
  - Pneumothorax [None]

NARRATIVE: CASE EVENT DATE: 2014
